FAERS Safety Report 7465058-4 (Version None)
Quarter: 2011Q2

REPORT INFORMATION
  Report Type: 
  Country: None (occurrence: None)
  Receive Date: 20110509
  Receipt Date: 20110501
  Transmission Date: 20111010
  Serious: Yes (Other)
  Sender: FDA-Public Use
  Company Number: BR-SANOFI-AVENTIS-2011SA027121

PATIENT
  Age: 6 Month
  Sex: Female

DRUGS (3)
  1. ALLEGRA [Suspect]
     Route: 048
     Dates: start: 20110430, end: 20110430
  2. ALLEGRA [Suspect]
     Route: 048
     Dates: start: 20110501, end: 20110501
  3. ALLEGRA [Suspect]
     Dosage: 2.5 ML IN THE MORNING AND AT NIGHT
     Route: 048
     Dates: start: 20110423, end: 20110423

REACTIONS (8)
  - PHARYNGITIS [None]
  - WOUND [None]
  - PERIPHERAL VASCULAR DISORDER [None]
  - PYREXIA [None]
  - PETECHIAE [None]
  - PAIN [None]
  - CONVULSION [None]
  - FEELING COLD [None]
